FAERS Safety Report 17186096 (Version 1)
Quarter: 2019Q4

REPORT INFORMATION
  Report Type: Spontaneous
  Country: US (occurrence: US)
  Receive Date: 20191220
  Receipt Date: 20191220
  Transmission Date: 20200122
  Serious: No
  Sender: FDA-Public Use
  Company Number: US-GLAXOSMITHKLINE-US2019TSO232809

PATIENT
  Sex: Female

DRUGS (1)
  1. NIRAPARIB TABLET [Suspect]
     Active Substance: NIRAPARIB
     Indication: OVARIAN CANCER
     Dosage: UNK
     Route: 048
     Dates: start: 201903

REACTIONS (2)
  - Blood magnesium decreased [Unknown]
  - Headache [Unknown]

NARRATIVE: CASE EVENT DATE: 201903
